FAERS Safety Report 5203575-8 (Version None)
Quarter: 2007Q1

REPORT INFORMATION
  Report Type: 
  Country: None (occurrence: None)
  Receive Date: 20070110
  Receipt Date: 20070105
  Transmission Date: 20070707
  Serious: Yes (Hospitalization)
  Sender: FDA-Public Use
  Company Number: IT-GLAXOSMITHKLINE-B0453381A

PATIENT
  Age: 93 Year
  Sex: Female

DRUGS (9)
  1. LANOXIN [Suspect]
     Dosage: .06MG PER DAY
     Route: 048
     Dates: start: 20060101, end: 20061016
  2. ISOPTIN [Suspect]
     Indication: ATRIAL FIBRILLATION
     Dosage: 160MG PER DAY
     Route: 048
     Dates: start: 20060101, end: 20061016
  3. ALLOPURINOL TAB [Concomitant]
  4. LASIX [Concomitant]
     Dosage: 50MG PER DAY
     Route: 048
  5. MINITRAN [Concomitant]
     Route: 062
  6. TAVOR [Concomitant]
  7. CARDIRENE [Concomitant]
  8. MEPRAL [Concomitant]
     Route: 048
  9. SPIRONOLACTONE [Concomitant]
     Dosage: 25MG PER DAY
     Route: 048

REACTIONS (3)
  - ATRIOVENTRICULAR BLOCK [None]
  - PERIPHERAL ISCHAEMIA [None]
  - THERAPEUTIC AGENT TOXICITY [None]
